FAERS Safety Report 9729417 (Version 1)
Quarter: 2013Q4

REPORT INFORMATION
  Report Type: Spontaneous
  Country: US (occurrence: US)
  Receive Date: 20131204
  Receipt Date: 20131204
  Transmission Date: 20140711
  Serious: No
  Sender: FDA-Public Use
  Company Number: US-GILEAD-2009-0021204

PATIENT
  Sex: Female
  Weight: 88.45 kg

DRUGS (9)
  1. LETAIRIS [Suspect]
     Indication: PULMONARY ARTERIAL HYPERTENSION
     Route: 048
     Dates: start: 20090309
  2. FUROSEMIDE [Concomitant]
  3. ALTACE [Concomitant]
  4. AMIODARONE [Concomitant]
  5. ECOTRIN [Concomitant]
  6. PLAVIX [Concomitant]
  7. PRAVASTATIN [Concomitant]
  8. OMEPRAZOLE [Concomitant]
  9. PRESERVISION SOFTGEL [Concomitant]

REACTIONS (1)
  - Local swelling [Unknown]
